FAERS Safety Report 4401185-3 (Version None)
Quarter: 2004Q3

REPORT INFORMATION
  Report Type: 
  Country: None (occurrence: None)
  Receive Date: 20040907
  Receipt Date: 20031208
  Transmission Date: 20050211
  Serious: No
  Sender: FDA-Public Use
  Company Number: US-BRISTOL-MYERS SQUIBB COMPANY-12452355

PATIENT
  Sex: Male

DRUGS (3)
  1. COUMADIN [Suspect]
     Route: 048
  2. FLU VACCINE [Suspect]
     Dates: start: 20020101
  3. FLU VACCINE [Suspect]
     Route: 030
     Dates: start: 20020101

REACTIONS (1)
  - PROTHROMBIN TIME PROLONGED [None]
